FAERS Safety Report 8275783-3 (Version None)
Quarter: 2012Q2

REPORT INFORMATION
  Report Type: 
  Country: None (occurrence: None)
  Receive Date: 20120410
  Receipt Date: 20120410
  Transmission Date: 20120825
  Serious: Yes (Life-Threatening, Hospitalization, Disabling)
  Sender: FDA-Public Use
  Company Number: None

PATIENT
  Age: 61 Year
  Sex: Female
  Weight: 64.5 kg

DRUGS (2)
  1. ACETAMINOPHEN [Suspect]
     Indication: PYREXIA
     Dates: start: 20111115, end: 20111117
  2. ACETAMINOPHEN [Suspect]
     Indication: CHILLS
     Dates: start: 20111115, end: 20111117

REACTIONS (13)
  - SEPSIS [None]
  - TOXICITY TO VARIOUS AGENTS [None]
  - LIVER FUNCTION TEST ABNORMAL [None]
  - RENAL FAILURE ACUTE [None]
  - BLOOD LACTIC ACID INCREASED [None]
  - NAUSEA [None]
  - TACHYCARDIA [None]
  - METABOLIC ACIDOSIS [None]
  - INTERNATIONAL NORMALISED RATIO ABNORMAL [None]
  - BLOOD CREATINE PHOSPHOKINASE INCREASED [None]
  - VOMITING [None]
  - HYPOKALAEMIA [None]
  - INCORRECT DOSE ADMINISTERED [None]
